FAERS Safety Report 24612571 (Version 2)
Quarter: 2024Q4

REPORT INFORMATION
  Report Type: Report from Study
  Country: CO (occurrence: CO)
  Receive Date: 20241113
  Receipt Date: 20241205
  Transmission Date: 20250114
  Serious: Yes (Hospitalization, Other)
  Sender: IPSEN BIOPHARMACEUTICALS, INC.
  Company Number: CO-IPSEN Group, Research and Development-2023-22408

PATIENT
  Age: 66 Year
  Sex: Female
  Weight: 70 kg

DRUGS (8)
  1. LANREOTIDE ACETATE [Suspect]
     Active Substance: LANREOTIDE ACETATE
     Indication: Acromegaly
     Dosage: DEEP SUBCUTANEOUS
     Route: 058
     Dates: start: 20160809
  2. LEVOTHYROXINE [Concomitant]
     Active Substance: LEVOTHYROXINE
     Indication: Hormone level abnormal
     Dosage: 1 TABLET EVERY OTHER DAY
     Route: 048
     Dates: start: 2015, end: 20241104
  3. LEVOTHYROXINE [Concomitant]
     Active Substance: LEVOTHYROXINE
     Indication: Hypothyroidism
     Dosage: 1 TABLET EVERY DAY
     Route: 048
  4. CABERGOLINE [Concomitant]
     Active Substance: CABERGOLINE
     Dosage: VOLUNTARY SUSPENDED
     Route: 048
  5. ACETAMINOPHEN [Concomitant]
     Active Substance: ACETAMINOPHEN
     Route: 048
  6. OMEPRAZOLE [Concomitant]
     Active Substance: OMEPRAZOLE
     Route: 048
  7. KETOPROFEN [Concomitant]
     Active Substance: KETOPROFEN
     Indication: Pain
     Dosage: 2,5 GEL
     Route: 061
     Dates: start: 202311
  8. METFORMIN PLUS EMPAGLIFLOZIN [Concomitant]
     Indication: Hypoglycaemia
     Dosage: 1000  PLUS 12.5 MG
     Route: 048
     Dates: start: 202311

REACTIONS (11)
  - Vomiting [Not Recovered/Not Resolved]
  - Diarrhoea [Unknown]
  - Chills [Unknown]
  - Headache [Unknown]
  - Syncope [Unknown]
  - Fatigue [Not Recovered/Not Resolved]
  - Pain in extremity [Not Recovered/Not Resolved]
  - Inappropriate schedule of product administration [Unknown]
  - Product dose omission issue [Unknown]
  - Product supply issue [Unknown]
  - Product dose omission issue [Unknown]

NARRATIVE: CASE EVENT DATE: 20230901
